FAERS Safety Report 8392694-3 (Version None)
Quarter: 2012Q2

REPORT INFORMATION
  Report Type: 
  Country: None (occurrence: None)
  Receive Date: 20120525
  Receipt Date: 20120525
  Transmission Date: 20120825
  Serious: Yes (Life-Threatening, Disabling, Other)
  Sender: FDA-Public Use
  Company Number: None

PATIENT
  Age: 70 Year
  Sex: Female
  Weight: 52.1637 kg

DRUGS (1)
  1. ZOCOR [Suspect]
     Indication: BLOOD CHOLESTEROL
     Dosage: BID PO
     Route: 048
     Dates: start: 20080815, end: 20110919

REACTIONS (7)
  - PAIN IN EXTREMITY [None]
  - HYPOAESTHESIA [None]
  - ARTHRALGIA [None]
  - ABASIA [None]
  - INSOMNIA [None]
  - MUSCLE INJURY [None]
  - DYSKINESIA [None]
